FAERS Safety Report 7269844-5 (Version None)
Quarter: 2011Q1

REPORT INFORMATION
  Report Type: 
  Country: None (occurrence: None)
  Receive Date: 20110202
  Receipt Date: 20101203
  Transmission Date: 20110831
  Serious: No
  Sender: FDA-Public Use
  Company Number: US-BAYER-2010-006535

PATIENT
  Sex: Male
  Weight: 96 kg

DRUGS (8)
  1. CRESTOR [Concomitant]
  2. ALEVE (CAPLET) [Suspect]
     Indication: ARTHRITIS
     Dosage: UNK
     Route: 048
     Dates: start: 20100101
  3. AVODART [Concomitant]
  4. ASPIRIN [Suspect]
     Indication: NASOPHARYNGITIS
     Dosage: 325 MG, QID
     Route: 048
     Dates: start: 20101201
  5. PREVACID [Concomitant]
  6. FIBERCON [Concomitant]
  7. DIOVANE [Concomitant]
  8. METFORMIN [Concomitant]

REACTIONS (2)
  - MUSCLE SPASMS [None]
  - HYPOAESTHESIA [None]
